FAERS Safety Report 5323315-1 (Version None)
Quarter: 2007Q2

REPORT INFORMATION
  Report Type: 
  Country: None (occurrence: None)
  Receive Date: 20070221
  Receipt Date: 20061005
  Transmission Date: 20071010
  Serious: Yes (Other)
  Sender: FDA-Public Use
  Company Number: BDI-008721

PATIENT
  Age: 41 Year
  Sex: Female
  Weight: 63.64 kg

DRUGS (2)
  1. ISOVUE-300 [Suspect]
     Indication: COMPUTERISED TOMOGRAM
     Dosage: 150 ML ONCE IV
     Route: 042
     Dates: start: 20060928, end: 20060928
  2. ISOVUE-300 [Suspect]
     Indication: LUNG NEOPLASM
     Dosage: 150 ML ONCE IV
     Route: 042
     Dates: start: 20060928, end: 20060928

REACTIONS (3)
  - CHEST DISCOMFORT [None]
  - DYSPNOEA [None]
  - TREMOR [None]
